FAERS Safety Report 8695083 (Version 2)
Quarter: 2014Q3

REPORT INFORMATION
  Report Type: Spontaneous
  Country: US (occurrence: US)
  Receive Date: 20120731
  Receipt Date: 20140728
  Transmission Date: 20150326
  Serious: Yes (Hospitalization, Other)
  Sender: FDA-Public Use
  Company Number: US-009507513-1207USA007475

PATIENT
  Sex: Female
  Weight: 65.4 kg

DRUGS (1)
  1. NUVARING [Suspect]
     Active Substance: ETHINYL ESTRADIOL\ETONOGESTREL
     Indication: MENSTRUAL CYCLE MANAGEMENT
     Dosage: UNK UNK, QM
     Route: 067
     Dates: start: 20061002

REACTIONS (7)
  - Sinus congestion [Unknown]
  - Pain in extremity [Recovered/Resolved]
  - Pulmonary embolism [Unknown]
  - Myocardial infarction [Unknown]
  - Hypertension [Unknown]
  - Off label use [Unknown]
  - Bunion operation [Unknown]

NARRATIVE: CASE EVENT DATE: 20061002
